FAERS Safety Report 23709092 (Version 1)
Quarter: 2024Q2

REPORT INFORMATION
  Report Type: Spontaneous
  Country: CN (occurrence: CN)
  Receive Date: 20240404
  Receipt Date: 20240404
  Transmission Date: 20240716
  Serious: Yes (Other)
  Sender: FDA-Public Use
  Company Number: CN-PFIZER INC-PV202400042838

PATIENT
  Age: 1 Year
  Sex: Male
  Weight: 11.7 kg

DRUGS (2)
  1. ZITHROMAX [Suspect]
     Active Substance: AZITHROMYCIN DIHYDRATE
     Indication: Pneumonia
     Dosage: 0.1 G, 1X/DAY
     Route: 041
     Dates: start: 20240307, end: 20240308
  2. ZITHROMAX [Suspect]
     Active Substance: AZITHROMYCIN DIHYDRATE
     Indication: Mycoplasma test positive

REACTIONS (9)
  - Chills [Recovering/Resolving]
  - Heart rate increased [Recovering/Resolving]
  - Temperature intolerance [Unknown]
  - Cyanosis [Unknown]
  - Crying [Unknown]
  - Restlessness [Unknown]
  - Inflammation [Unknown]
  - Hyperpyrexia [Recovering/Resolving]
  - Off label use [Unknown]

NARRATIVE: CASE EVENT DATE: 20240307
